FAERS Safety Report 9627962 (Version 2)
Quarter: 2013Q4

REPORT INFORMATION
  Report Type: Spontaneous
  Country: GB (occurrence: GB)
  Receive Date: 20131016
  Receipt Date: 20131016
  Transmission Date: 20140711
  Serious: Yes (Death, Congenital Anomaly)
  Sender: FDA-Public Use
  Company Number: PHHY2012GB113971

PATIENT
  Sex: Male

DRUGS (1)
  1. RAMIPRIL [Suspect]
     Indication: HYPERTENSION
     Dosage: (MATERNAL DOSE 5 MG QD)
     Route: 064
     Dates: end: 20120829

REACTIONS (4)
  - Foetal death [Fatal]
  - Foetal growth restriction [Fatal]
  - Placental disorder [Fatal]
  - Foetal exposure during pregnancy [Unknown]
